FAERS Safety Report 17545793 (Version 1)
Quarter: 2020Q1

REPORT INFORMATION
  Report Type: Spontaneous
  Country: DK (occurrence: DK)
  Receive Date: 20200316
  Receipt Date: 20200316
  Transmission Date: 20200409
  Serious: Yes (Other)
  Sender: FDA-Public Use
  Company Number: DK-009507513-2003DNK005039

PATIENT
  Age: 72 Year
  Sex: Male

DRUGS (3)
  1. CARBOPLATIN. [Suspect]
     Active Substance: CARBOPLATIN
     Indication: NON-SMALL CELL LUNG CANCER METASTATIC
     Dosage: 650 MILLIGRAM, TREATMENT POSTPONED TWO (2) WEEKS DUE TO NEUTROPENIA, STRENGTH: 10MG/ML,A TOTAL OF TW
     Route: 042
     Dates: start: 20200106
  2. ALIMTA [Suspect]
     Active Substance: PEMETREXED DISODIUM
     Indication: NON-SMALL CELL LUNG CANCER METASTATIC
     Dosage: DOSE: 1000 MILLIGRAM, TREATMENT POSTPONED TWO (2) WEEKS DUE TO NEUTROPENIA, STRENGTH: 500 MG, A TOTA
     Route: 042
     Dates: start: 20200106
  3. KEYTRUDA [Suspect]
     Active Substance: PEMBROLIZUMAB
     Indication: NON-SMALL CELL LUNG CANCER METASTATIC
     Dosage: 168 MILLIGRAM, TREATMENT POSTPONED TWO (2) WEEKS DUE TO NEUTROPENIA, STRENGTH: 25 MG/ML A TOTAL OF T
     Route: 042
     Dates: start: 20200106

REACTIONS (2)
  - Bone marrow toxicity [Recovered/Resolved]
  - Neutropenia [Recovered/Resolved]

NARRATIVE: CASE EVENT DATE: 202001
